FAERS Safety Report 15982986 (Version 10)
Quarter: 2019Q2

REPORT INFORMATION
  Report Type: Report from Study
  Country: US (occurrence: US)
  Receive Date: 20190219
  Receipt Date: 20190621
  Transmission Date: 20190711
  Serious: Yes (Hospitalization)
  Sender: FDA-Public Use
  Company Number: US-ACTELION-A-NJ2019-186044

PATIENT
  Age: 46 Year
  Sex: Female
  Weight: 69.39 kg

DRUGS (5)
  1. ADEMPAS [Concomitant]
     Active Substance: RIOCIGUAT
     Dosage: 2.5 UNK, TID
  2. VELETRI [Suspect]
     Active Substance: EPOPROSTENOL
     Dosage: UNK
     Route: 042
  3. VELETRI [Suspect]
     Active Substance: EPOPROSTENOL
     Dosage: 42 NG/KG, PER MIN
     Route: 042
  4. OPSUMIT [Suspect]
     Active Substance: MACITENTAN
     Indication: PULMONARY HYPERTENSION
     Dosage: 10 MG, QD
     Route: 048
  5. VELETRI [Suspect]
     Active Substance: EPOPROSTENOL
     Indication: PULMONARY HYPERTENSION
     Dosage: 40 NG/KG, PER MIN
     Route: 042

REACTIONS (26)
  - Traumatic haematoma [Unknown]
  - Bradycardia [Unknown]
  - Gait inability [Unknown]
  - Thrombectomy [Unknown]
  - Cholelithiasis [Unknown]
  - Compartment syndrome [Unknown]
  - Haematoma evacuation [Unknown]
  - Thrombosis [Unknown]
  - Sinusitis [Unknown]
  - Anaemia [Unknown]
  - Peripheral swelling [Unknown]
  - Hypotension [Unknown]
  - Sciatica [Unknown]
  - Fasciotomy [Unknown]
  - Transfusion [Unknown]
  - Haemarthrosis [Unknown]
  - Nasopharyngitis [Unknown]
  - Pain [Unknown]
  - Pancreatitis [Unknown]
  - Infection [Unknown]
  - Electrolyte imbalance [Unknown]
  - Fluid retention [Unknown]
  - Cellulitis [Unknown]
  - Blood pressure diastolic decreased [Unknown]
  - Cardiac failure [Unknown]
  - Cyst [Unknown]

NARRATIVE: CASE EVENT DATE: 20190415
